FAERS Safety Report 5566963-6 (Version None)
Quarter: 2007Q4

REPORT INFORMATION
  Report Type: 
  Country: None (occurrence: None)
  Receive Date: 20071218
  Receipt Date: 20071218
  Transmission Date: 20080405
  Serious: No
  Sender: FDA-Public Use
  Company Number: None

PATIENT
  Age: 19 Year
  Sex: Female
  Weight: 57.1532 kg

DRUGS (11)
  1. HYDROXYCHLOROQUINE SULFATE [Suspect]
     Dosage: 200MG PO
     Route: 048
  2. KLONOPIN [Concomitant]
  3. RISPERDAL [Concomitant]
  4. AMBIEN CR [Concomitant]
  5. MYCOPHENOLATE MOFETIL [Concomitant]
  6. FLUCONAZOLE [Concomitant]
  7. METOPROLOL [Concomitant]
  8. POTASSIUM CHLORIDE [Concomitant]
  9. IMODIUM [Concomitant]
  10. LORAZEPAM [Concomitant]
  11. HALOPERIDOL [Concomitant]

REACTIONS (1)
  - PSORIASIS [None]
